FAERS Safety Report 8607245 (Version 3)
Quarter: 2014Q1

REPORT INFORMATION
  Report Type: Spontaneous
  Country: US (occurrence: US)
  Receive Date: 20120611
  Receipt Date: 20140124
  Transmission Date: 20141002
  Serious: Yes (Disabling)
  Sender: FDA-Public Use
  Company Number: US-ASTRAZENECA-2012SE34845

PATIENT
  Age: 18723 Day
  Sex: Female
  Weight: 78.5 kg

DRUGS (33)
  1. NEXIUM [Suspect]
     Indication: GASTROOESOPHAGEAL REFLUX DISEASE
     Route: 048
     Dates: start: 20010829
  2. NEXIUM [Suspect]
     Indication: GASTROOESOPHAGEAL REFLUX DISEASE
     Route: 048
     Dates: start: 20061228
  3. TUMS [Concomitant]
  4. ALKA SELTZER [Concomitant]
  5. GAVISCON [Concomitant]
  6. PEPTO BISMOL [Concomitant]
  7. ROLAIDS [Concomitant]
  8. MYLANTA [Concomitant]
  9. CALCIUM [Concomitant]
  10. MAGNESIUM [Concomitant]
  11. BIOTIN [Concomitant]
  12. CRESTOR [Concomitant]
     Route: 048
     Dates: start: 20080902
  13. ASPIRIN [Concomitant]
  14. LASIX [Concomitant]
     Dates: start: 20000727
  15. LASIX [Concomitant]
  16. PREDNISONE [Concomitant]
     Dates: start: 20061016
  17. ADVAIR [Concomitant]
     Dosage: 500-50 DISKUS
     Dates: start: 20070913
  18. NITROSTAT [Concomitant]
  19. PROCARDIA XL [Concomitant]
     Dates: start: 20000805
  20. PROCARDIA XL [Concomitant]
     Dates: start: 20070126
  21. CIPRO [Concomitant]
     Dates: start: 20061107
  22. CIPRO [Concomitant]
     Dates: start: 20120327
  23. ALDACTONE [Concomitant]
     Dates: start: 20100412
  24. DICYCLOMINE [Concomitant]
     Dates: start: 20121026
  25. HYDROCODON-ACETAMINOPHEN [Concomitant]
     Dosage: 7.5/500
     Dates: start: 20061006
  26. HYDROCODON-ACETAMINOPHEN [Concomitant]
     Dosage: 10-325 MG
     Dates: start: 20081010
  27. HYDROCODON-ACETAMINOPHEN [Concomitant]
     Dosage: 5-325
     Dates: start: 20121026
  28. TOPROL XL [Concomitant]
     Route: 048
     Dates: start: 20120531
  29. TRAMADOL HCL [Concomitant]
     Dates: start: 20081023
  30. OXYCODONE W/APAP [Concomitant]
     Dosage: 5/500
     Dates: start: 20060614
  31. ZESTORETIC [Concomitant]
     Dosage: 20/12.5
     Dates: start: 20000428
  32. PRILOSEC [Concomitant]
     Route: 048
     Dates: start: 20000428
  33. OXYCODONE [Concomitant]
     Dates: start: 20040510

REACTIONS (12)
  - Limb injury [Unknown]
  - Osteoporosis [Unknown]
  - Lower limb fracture [Unknown]
  - Joint injury [Unknown]
  - Back injury [Unknown]
  - Calcium deficiency [Unknown]
  - Arthritis [Unknown]
  - Chronic obstructive pulmonary disease [Unknown]
  - Fall [Unknown]
  - Contusion [Unknown]
  - Fibula fracture [Unknown]
  - Ankle fracture [Unknown]
